FAERS Safety Report 5208846-7 (Version None)
Quarter: 2007Q1

REPORT INFORMATION
  Report Type: 
  Country: None (occurrence: None)
  Receive Date: 20070116
  Receipt Date: 20070112
  Transmission Date: 20070707
  Serious: Yes (Death, Life-Threatening, Other)
  Sender: FDA-Public Use
  Company Number: FR-BAYER-200611118BFR

PATIENT
  Age: 32 Year
  Sex: Male
  Weight: 75 kg

DRUGS (1)
  1. TRASYLOL [Suspect]
     Indication: CARDIAC OPERATION
     Dosage: TOTAL DAILY DOSE: 500 MIU  UNIT DOSE: 500 MIU
     Route: 042
     Dates: start: 20061108, end: 20061108

REACTIONS (9)
  - ACIDOSIS [None]
  - ANAPHYLACTIC SHOCK [None]
  - CARDIOVASCULAR DISORDER [None]
  - CIRCULATORY COLLAPSE [None]
  - CYTOLYTIC HEPATITIS [None]
  - HEPATIC FAILURE [None]
  - KLEBSIELLA INFECTION [None]
  - RENAL FAILURE ACUTE [None]
  - VENTRICULAR DYSFUNCTION [None]
